FAERS Safety Report 5571988-0 (Version None)
Quarter: 2007Q4

REPORT INFORMATION
  Report Type: 
  Country: None (occurrence: None)
  Receive Date: 20071221
  Receipt Date: 20071218
  Transmission Date: 20080405
  Serious: Yes (Death, Hospitalization)
  Sender: FDA-Public Use
  Company Number: FR-BOEHRINGER INGELHEIM PHARMACEUTICALS, INC.-2007-FF-01178FF

PATIENT
  Sex: Female

DRUGS (14)
  1. ATROVENT [Suspect]
     Dates: start: 20071119
  2. DIGIDOT [Concomitant]
  3. MOPRAL [Concomitant]
     Route: 048
     Dates: start: 20071119, end: 20071120
  4. ALBUTEROL [Concomitant]
     Indication: RESPIRATORY DEPRESSION
     Route: 055
     Dates: start: 20071119
  5. ATARAX [Concomitant]
     Indication: AGITATION
     Route: 048
     Dates: start: 20071119, end: 20071119
  6. NOZINAN [Concomitant]
     Indication: AGITATION
     Route: 048
     Dates: start: 20071119, end: 20071119
  7. RAMIPRIL [Concomitant]
  8. COUMADIN [Concomitant]
  9. LASILIX [Concomitant]
  10. ALDALIX [Concomitant]
  11. ZYLORIC [Concomitant]
  12. EXELON [Concomitant]
  13. SEROPRAM [Concomitant]
  14. HEMIGOXINE [Concomitant]

REACTIONS (1)
  - RENAL FAILURE ACUTE [None]
